FAERS Safety Report 5215920-8 (Version None)
Quarter: 2007Q1

REPORT INFORMATION
  Report Type: 
  Country: None (occurrence: None)
  Receive Date: 20070123
  Receipt Date: 20070111
  Transmission Date: 20070707
  Serious: Yes (Death, Hospitalization)
  Sender: FDA-Public Use
  Company Number: BEWYE873901AUG05

PATIENT
  Age: 80 Year
  Sex: Female
  Weight: 52 kg

DRUGS (4)
  1. ENBREL [Suspect]
     Indication: RHEUMATOID ARTHRITIS
     Route: 058
     Dates: start: 20020726, end: 20031210
  2. ENBREL [Suspect]
     Route: 058
     Dates: start: 20040101, end: 20040101
  3. LEDERTREXATE [Concomitant]
     Route: 065
     Dates: start: 19950101, end: 20030120
  4. METHYLPREDNISOLONE 16MG TAB [Concomitant]
     Route: 065
     Dates: start: 20030217

REACTIONS (3)
  - INTERVERTEBRAL DISCITIS [None]
  - STAPHYLOCOCCAL INFECTION [None]
  - UROSEPSIS [None]
